FAERS Safety Report 6325048-1 (Version None)
Quarter: 2009Q3

REPORT INFORMATION
  Report Type: 
  Country: None (occurrence: None)
  Receive Date: 20090824
  Receipt Date: 20090627
  Transmission Date: 20100115
  Serious: No
  Sender: FDA-Public Use
  Company Number: US-ABBOTT-09P-163-0582137-00

PATIENT
  Sex: Female

DRUGS (21)
  1. NIASPAN [Suspect]
     Indication: BLOOD CHOLESTEROL INCREASED
     Dosage: DAILY AT BEDTIME
     Route: 048
     Dates: end: 20090624
  2. CRESTOR [Concomitant]
     Indication: DRUG USE FOR UNKNOWN INDICATION
     Dosage: DAILY
     Route: 048
  3. CELEBREX [Concomitant]
     Indication: DRUG USE FOR UNKNOWN INDICATION
  4. TIAZAC [Concomitant]
     Indication: DRUG USE FOR UNKNOWN INDICATION
  5. NEXIUM [Concomitant]
     Indication: DRUG USE FOR UNKNOWN INDICATION
  6. ZEMPLAR [Concomitant]
     Indication: DRUG USE FOR UNKNOWN INDICATION
  7. SNTHROID [Concomitant]
     Indication: DRUG USE FOR UNKNOWN INDICATION
  8. ZOLOFT [Concomitant]
     Indication: DRUG USE FOR UNKNOWN INDICATION
  9. FLEXERIL [Concomitant]
     Indication: DRUG USE FOR UNKNOWN INDICATION
  10. CLARINEX [Concomitant]
     Indication: DRUG USE FOR UNKNOWN INDICATION
     Dosage: ALTERNATES WITH ALLEGRA
  11. ALLEGRA [Concomitant]
     Indication: DRUG USE FOR UNKNOWN INDICATION
     Dosage: ALTERNATES WITH CLARINEX
  12. ACIDOPHILUS [Concomitant]
     Indication: DRUG USE FOR UNKNOWN INDICATION
  13. VIT B 12 [Concomitant]
     Indication: DRUG USE FOR UNKNOWN INDICATION
  14. DEPAKOTE [Concomitant]
     Indication: DRUG USE FOR UNKNOWN INDICATION
  15. VERAMIST [Concomitant]
     Indication: DRUG USE FOR UNKNOWN INDICATION
     Route: 045
  16. BYETTA [Concomitant]
     Indication: DRUG USE FOR UNKNOWN INDICATION
     Dosage: DAILY
     Route: 058
  17. CALTRATE [Concomitant]
     Indication: DRUG USE FOR UNKNOWN INDICATION
  18. M.V.I. [Concomitant]
     Indication: ANAEMIA
  19. UNKNOWN RESCUE INHALER [Concomitant]
     Indication: DRUG USE FOR UNKNOWN INDICATION
  20. SINGULAIR [Concomitant]
     Indication: DRUG USE FOR UNKNOWN INDICATION
  21. ROPINIROLOE [Concomitant]
     Indication: DRUG USE FOR UNKNOWN INDICATION

REACTIONS (1)
  - ARTHRALGIA [None]
